FAERS Safety Report 20913048 (Version 1)
Quarter: 2022Q2

REPORT INFORMATION
  Report Type: Spontaneous
  Country: TW (occurrence: TW)
  Receive Date: 20220603
  Receipt Date: 20220603
  Transmission Date: 20220721
  Serious: Yes (Life-Threatening, Other)
  Sender: FDA-Public Use
  Company Number: TW-PFIZER INC-202200789794

PATIENT
  Age: 57 Year
  Sex: Male

DRUGS (16)
  1. OXALIPLATIN [Suspect]
     Active Substance: OXALIPLATIN
     Indication: Adenocarcinoma pancreas
     Dosage: 75 MG/M2, DAY 1
     Dates: start: 201810
  2. OXALIPLATIN [Suspect]
     Active Substance: OXALIPLATIN
     Dosage: DOSE DE-ESCALATION (SIXTH CYCLE)
  3. OXALIPLATIN [Suspect]
     Active Substance: OXALIPLATIN
     Dosage: 11TH CYCLE
  4. OXALIPLATIN [Suspect]
     Active Substance: OXALIPLATIN
     Dosage: UNK
     Dates: end: 201912
  5. PACLITAXEL [Suspect]
     Active Substance: PACLITAXEL
     Indication: Adenocarcinoma pancreas
     Dosage: 150 MG/M2 , DAY 1
     Dates: start: 201810
  6. PACLITAXEL [Suspect]
     Active Substance: PACLITAXEL
     Dosage: DOSE DE-ESCALATION (SIXTH CYCLE)
  7. PACLITAXEL [Suspect]
     Active Substance: PACLITAXEL
     Dosage: 11TH CYCLE
  8. PACLITAXEL [Suspect]
     Active Substance: PACLITAXEL
     Dosage: UNK
     Dates: end: 201912
  9. TS-1 [Suspect]
     Active Substance: GIMERACIL\OTERACIL\TEGAFUR
     Indication: Adenocarcinoma pancreas
     Dosage: 120 MG PER DAY, DAYS 1-7
     Dates: start: 201810
  10. TS-1 [Suspect]
     Active Substance: GIMERACIL\OTERACIL\TEGAFUR
     Dosage: DOSE DE-ESCALATION (SIXTH CYCLE)
  11. TS-1 [Suspect]
     Active Substance: GIMERACIL\OTERACIL\TEGAFUR
     Dosage: 11TH CYCLE
  12. LEUCOVORIN [Suspect]
     Active Substance: LEUCOVORIN
     Indication: Adenocarcinoma pancreas
     Dosage: UNK UNK, CYCLIC
     Dates: start: 201810
  13. LEUCOVORIN [Suspect]
     Active Substance: LEUCOVORIN
     Dosage: DOSE DE-ESCALATION (SIXTH CYCLE)
  14. LEUCOVORIN [Suspect]
     Active Substance: LEUCOVORIN
     Dosage: 11TH CYCLE
  15. NIVOLUMAB [Concomitant]
     Active Substance: NIVOLUMAB
     Indication: Adenocarcinoma pancreas
     Dosage: BIWEEKLY
     Dates: start: 201910
  16. NIVOLUMAB [Concomitant]
     Active Substance: NIVOLUMAB
     Dosage: MAINTENANCE, EVERY 6 WEEKS

REACTIONS (2)
  - Neutropenia [Unknown]
  - Hypoaesthesia [Unknown]
